FAERS Safety Report 6653421-0 (Version None)
Quarter: 2010Q1

REPORT INFORMATION
  Report Type: 
  Country: None (occurrence: None)
  Receive Date: 20100326
  Receipt Date: 20100318
  Transmission Date: 20100710
  Serious: Yes (Other)
  Sender: FDA-Public Use
  Company Number: PHEH2010US03208

PATIENT
  Age: 64 Year
  Sex: Female

DRUGS (4)
  1. ZOMETA [Suspect]
     Indication: METASTASES TO BONE
     Dosage: 4 MG, Q 4 WEEKS
     Route: 042
     Dates: start: 20040101, end: 20080601
  2. ZOMETA [Suspect]
     Indication: BREAST CANCER
  3. GEMZAR [Concomitant]
  4. NAVELBINE [Concomitant]

REACTIONS (4)
  - IMPAIRED HEALING [None]
  - MASS [None]
  - SURGERY [None]
  - TOOTH EXTRACTION [None]
